FAERS Safety Report 13232150 (Version 3)
Quarter: 2017Q2

REPORT INFORMATION
  Report Type: Report from Study
  Country: US (occurrence: US)
  Receive Date: 20170214
  Receipt Date: 20170517
  Transmission Date: 20170830
  Serious: Yes (Death, Hospitalization)
  Sender: FDA-Public Use
  Company Number: US-BAUSCH-BL-2017-003489

PATIENT
  Age: 44 Year
  Sex: Male

DRUGS (1)
  1. XENAZINE [Suspect]
     Active Substance: TETRABENAZINE
     Indication: HUNTINGTON^S DISEASE
     Route: 048
     Dates: start: 201510

REACTIONS (3)
  - Bipolar disorder [Unknown]
  - Death [Fatal]
  - Hallucination, auditory [Unknown]

NARRATIVE: CASE EVENT DATE: 20170107
